FAERS Safety Report 4962198-6 (Version None)
Quarter: 2006Q2

REPORT INFORMATION
  Report Type: 
  Country: None (occurrence: None)
  Receive Date: 20060403
  Receipt Date: 20060403
  Transmission Date: 20061013
  Serious: Yes (Life-Threatening, Hospitalization)
  Sender: FDA-Public Use
  Company Number: None

PATIENT
  Age: 71 Year
  Sex: Female

DRUGS (10)
  1. MYLOTARG [Suspect]
     Indication: ACUTE MYELOID LEUKAEMIA
     Dosage: 10 MG   TWICE    IV DRIP
     Route: 041
  2. AVANDIA [Concomitant]
  3. CARDIZEM [Concomitant]
  4. AMIODARONE [Concomitant]
  5. TEMAZEPAM [Concomitant]
  6. GLIPIZIDE [Concomitant]
  7. LASIX [Concomitant]
  8. MAALOX FAST BLOCKER [Concomitant]
  9. COLACE [Concomitant]
  10. SENNA [Concomitant]

REACTIONS (1)
  - THERAPY NON-RESPONDER [None]
